FAERS Safety Report 6236550-5 (Version None)
Quarter: 2009Q2

REPORT INFORMATION
  Report Type: 
  Country: None (occurrence: None)
  Receive Date: 20090619
  Receipt Date: 20090612
  Transmission Date: 20091009
  Serious: Yes (Hospitalization)
  Sender: FDA-Public Use
  Company Number: B0579313A

PATIENT
  Sex: Male
  Weight: 51.5 kg

DRUGS (13)
  1. PLUSVENT [Suspect]
     Indication: DRUG USE FOR UNKNOWN INDICATION
  2. TMC125 [Suspect]
     Indication: HIV INFECTION
     Dosage: 200MG TWICE PER DAY
     Route: 048
     Dates: start: 20080226
  3. PREZISTA [Suspect]
     Indication: HIV INFECTION
     Dosage: 600MG TWICE PER DAY
     Route: 048
     Dates: start: 20080226
  4. RITONAVIR [Suspect]
     Indication: HIV INFECTION
     Dosage: 100MG TWICE PER DAY
     Route: 048
     Dates: start: 20080226
  5. TRUVADA [Concomitant]
     Dosage: 500MG PER DAY
     Route: 048
     Dates: start: 20090226
  6. RALTEGRAVIR [Concomitant]
     Indication: HIV INFECTION
     Dosage: 400MG TWICE PER DAY
     Route: 048
     Dates: start: 20080226
  7. MARAVIROC [Concomitant]
     Indication: HIV INFECTION
     Dosage: 150MG TWICE PER DAY
     Route: 048
     Dates: start: 20080226
  8. CALCIUM LEVOFOLINATE [Concomitant]
  9. DOMPERIDONE [Concomitant]
  10. BACTRIM [Concomitant]
  11. ALBUTEROL [Concomitant]
  12. SPIRIVA [Concomitant]
  13. PANTOPRAZOLE SODIUM [Concomitant]

REACTIONS (3)
  - DRUG INTERACTION [None]
  - KLEBSIELLA INFECTION [None]
  - TYPE 2 DIABETES MELLITUS [None]
